FAERS Safety Report 26001994 (Version 1)
Quarter: 2025Q4

REPORT INFORMATION
  Report Type: Spontaneous
  Country: EU (occurrence: EU)
  Receive Date: 20251105
  Receipt Date: 20251105
  Transmission Date: 20260117
  Serious: Yes (Congenital Anomaly, Other)
  Sender: MYLAN
  Company Number: None

PATIENT
  Sex: Male
  Weight: 2.54 kg

DRUGS (48)
  1. SERTRALINE [Suspect]
     Active Substance: SERTRALINE HYDROCHLORIDE
     Indication: Eating disorder
     Dosage: UNK UNK, QD, 150 TO 250 MG/D
     Dates: start: 20240628, end: 20250222
  2. SERTRALINE [Suspect]
     Active Substance: SERTRALINE HYDROCHLORIDE
     Dosage: UNK UNK, QD, 150 TO 250 MG/D
     Dates: start: 20240628, end: 20250222
  3. SERTRALINE [Suspect]
     Active Substance: SERTRALINE HYDROCHLORIDE
     Dosage: UNK UNK, QD, 150 TO 250 MG/D
     Route: 064
     Dates: start: 20240628, end: 20250222
  4. SERTRALINE [Suspect]
     Active Substance: SERTRALINE HYDROCHLORIDE
     Dosage: UNK UNK, QD, 150 TO 250 MG/D
     Route: 064
     Dates: start: 20240628, end: 20250222
  5. SERTRALINE [Suspect]
     Active Substance: SERTRALINE HYDROCHLORIDE
     Dosage: UNK UNK, QD, 150 TO 250 MG/D
     Dates: start: 20240628, end: 20250222
  6. SERTRALINE [Suspect]
     Active Substance: SERTRALINE HYDROCHLORIDE
     Dosage: UNK UNK, QD, 150 TO 250 MG/D
     Dates: start: 20240628, end: 20250222
  7. SERTRALINE [Suspect]
     Active Substance: SERTRALINE HYDROCHLORIDE
     Dosage: UNK UNK, QD, 150 TO 250 MG/D
     Route: 064
     Dates: start: 20240628, end: 20250222
  8. SERTRALINE [Suspect]
     Active Substance: SERTRALINE HYDROCHLORIDE
     Dosage: UNK UNK, QD, 150 TO 250 MG/D
     Route: 064
     Dates: start: 20240628, end: 20250222
  9. QUETIAPINE [Suspect]
     Active Substance: QUETIAPINE
     Indication: Eating disorder
     Dosage: UNK UNK, QD, 300 TO 400 MG/D
     Dates: start: 20240628, end: 20250222
  10. QUETIAPINE [Suspect]
     Active Substance: QUETIAPINE
     Dosage: UNK UNK, QD, 300 TO 400 MG/D
     Dates: start: 20240628, end: 20250222
  11. QUETIAPINE [Suspect]
     Active Substance: QUETIAPINE
     Dosage: UNK UNK, QD, 300 TO 400 MG/D
     Route: 064
     Dates: start: 20240628, end: 20250222
  12. QUETIAPINE [Suspect]
     Active Substance: QUETIAPINE
     Dosage: UNK UNK, QD, 300 TO 400 MG/D
     Route: 064
     Dates: start: 20240628, end: 20250222
  13. QUETIAPINE [Suspect]
     Active Substance: QUETIAPINE
     Dosage: UNK UNK, QD, 300 TO 400 MG/D
     Dates: start: 20240628, end: 20250222
  14. QUETIAPINE [Suspect]
     Active Substance: QUETIAPINE
     Dosage: UNK UNK, QD, 300 TO 400 MG/D
     Dates: start: 20240628, end: 20250222
  15. QUETIAPINE [Suspect]
     Active Substance: QUETIAPINE
     Dosage: UNK UNK, QD, 300 TO 400 MG/D
     Route: 064
     Dates: start: 20240628, end: 20250222
  16. QUETIAPINE [Suspect]
     Active Substance: QUETIAPINE
     Dosage: UNK UNK, QD, 300 TO 400 MG/D
     Route: 064
     Dates: start: 20240628, end: 20250222
  17. ATARAX [Suspect]
     Active Substance: HYDROXYZINE HYDROCHLORIDE
     Indication: Sleep disorder
     Dosage: 25 MILLIGRAM, QD 25MG/D
     Dates: start: 2025, end: 20250222
  18. ATARAX [Suspect]
     Active Substance: HYDROXYZINE HYDROCHLORIDE
     Dosage: 25 MILLIGRAM, QD 25MG/D
     Dates: start: 2025, end: 20250222
  19. ATARAX [Suspect]
     Active Substance: HYDROXYZINE HYDROCHLORIDE
     Dosage: 25 MILLIGRAM, QD 25MG/D
     Route: 064
     Dates: start: 2025, end: 20250222
  20. ATARAX [Suspect]
     Active Substance: HYDROXYZINE HYDROCHLORIDE
     Dosage: 25 MILLIGRAM, QD 25MG/D
     Route: 064
     Dates: start: 2025, end: 20250222
  21. ATARAX [Suspect]
     Active Substance: HYDROXYZINE HYDROCHLORIDE
     Dosage: 25 MILLIGRAM, QD 25MG/D
     Dates: start: 2025, end: 20250222
  22. ATARAX [Suspect]
     Active Substance: HYDROXYZINE HYDROCHLORIDE
     Dosage: 25 MILLIGRAM, QD 25MG/D
     Dates: start: 2025, end: 20250222
  23. ATARAX [Suspect]
     Active Substance: HYDROXYZINE HYDROCHLORIDE
     Dosage: 25 MILLIGRAM, QD 25MG/D
     Route: 064
     Dates: start: 2025, end: 20250222
  24. ATARAX [Suspect]
     Active Substance: HYDROXYZINE HYDROCHLORIDE
     Dosage: 25 MILLIGRAM, QD 25MG/D
     Route: 064
     Dates: start: 2025, end: 20250222
  25. MELATONIN [Concomitant]
     Active Substance: MELATONIN
     Indication: Sleep disorder
     Dosage: 8 MILLIGRAM, QD, 8MG/D
     Dates: end: 202412
  26. MELATONIN [Concomitant]
     Active Substance: MELATONIN
     Dosage: 8 MILLIGRAM, QD, 8MG/D
     Dates: end: 202412
  27. MELATONIN [Concomitant]
     Active Substance: MELATONIN
     Dosage: 8 MILLIGRAM, QD, 8MG/D
     Route: 064
     Dates: end: 202412
  28. MELATONIN [Concomitant]
     Active Substance: MELATONIN
     Dosage: 8 MILLIGRAM, QD, 8MG/D
     Route: 064
     Dates: end: 202412
  29. MELATONIN [Concomitant]
     Active Substance: MELATONIN
     Dosage: 8 MILLIGRAM, QD, 8MG/D
     Dates: end: 202412
  30. MELATONIN [Concomitant]
     Active Substance: MELATONIN
     Dosage: 8 MILLIGRAM, QD, 8MG/D
     Dates: end: 202412
  31. MELATONIN [Concomitant]
     Active Substance: MELATONIN
     Dosage: 8 MILLIGRAM, QD, 8MG/D
     Route: 064
     Dates: end: 202412
  32. MELATONIN [Concomitant]
     Active Substance: MELATONIN
     Dosage: 8 MILLIGRAM, QD, 8MG/D
     Route: 064
     Dates: end: 202412
  33. URSODIOL [Concomitant]
     Active Substance: URSODIOL
     Indication: Cholestasis of pregnancy
     Dosage: 500 MILLIGRAM, BID, 500 MG MORNING AND EVENING
     Dates: start: 2025, end: 20250222
  34. URSODIOL [Concomitant]
     Active Substance: URSODIOL
     Dosage: 500 MILLIGRAM, BID, 500 MG MORNING AND EVENING
     Dates: start: 2025, end: 20250222
  35. URSODIOL [Concomitant]
     Active Substance: URSODIOL
     Dosage: 500 MILLIGRAM, BID, 500 MG MORNING AND EVENING
     Route: 064
     Dates: start: 2025, end: 20250222
  36. URSODIOL [Concomitant]
     Active Substance: URSODIOL
     Dosage: 500 MILLIGRAM, BID, 500 MG MORNING AND EVENING
     Route: 064
     Dates: start: 2025, end: 20250222
  37. URSODIOL [Concomitant]
     Active Substance: URSODIOL
     Dosage: 500 MILLIGRAM, BID, 500 MG MORNING AND EVENING
     Dates: start: 2025, end: 20250222
  38. URSODIOL [Concomitant]
     Active Substance: URSODIOL
     Dosage: 500 MILLIGRAM, BID, 500 MG MORNING AND EVENING
     Dates: start: 2025, end: 20250222
  39. URSODIOL [Concomitant]
     Active Substance: URSODIOL
     Dosage: 500 MILLIGRAM, BID, 500 MG MORNING AND EVENING
     Route: 064
     Dates: start: 2025, end: 20250222
  40. URSODIOL [Concomitant]
     Active Substance: URSODIOL
     Dosage: 500 MILLIGRAM, BID, 500 MG MORNING AND EVENING
     Route: 064
     Dates: start: 2025, end: 20250222
  41. CALCIUM PHOSPHATE, DIBASIC, ANHYDROUS\MAGNESIUM GLYCEROPHOSPHATE\PHOSP [Concomitant]
     Active Substance: CALCIUM PHOSPHATE, DIBASIC, ANHYDROUS\MAGNESIUM GLYCEROPHOSPHATE\PHOSPHORIC ACID\SODIUM PHOSPHATE, D
     Indication: Cholestasis of pregnancy
     Dosage: 30 GTT DROPS, QD, 30 DROPS/DAY
     Dates: start: 20240628, end: 20250222
  42. CALCIUM PHOSPHATE, DIBASIC, ANHYDROUS\MAGNESIUM GLYCEROPHOSPHATE\PHOSP [Concomitant]
     Active Substance: CALCIUM PHOSPHATE, DIBASIC, ANHYDROUS\MAGNESIUM GLYCEROPHOSPHATE\PHOSPHORIC ACID\SODIUM PHOSPHATE, D
     Dosage: 30 GTT DROPS, QD, 30 DROPS/DAY
     Dates: start: 20240628, end: 20250222
  43. CALCIUM PHOSPHATE, DIBASIC, ANHYDROUS\MAGNESIUM GLYCEROPHOSPHATE\PHOSP [Concomitant]
     Active Substance: CALCIUM PHOSPHATE, DIBASIC, ANHYDROUS\MAGNESIUM GLYCEROPHOSPHATE\PHOSPHORIC ACID\SODIUM PHOSPHATE, D
     Dosage: 30 GTT DROPS, QD, 30 DROPS/DAY
     Route: 064
     Dates: start: 20240628, end: 20250222
  44. CALCIUM PHOSPHATE, DIBASIC, ANHYDROUS\MAGNESIUM GLYCEROPHOSPHATE\PHOSP [Concomitant]
     Active Substance: CALCIUM PHOSPHATE, DIBASIC, ANHYDROUS\MAGNESIUM GLYCEROPHOSPHATE\PHOSPHORIC ACID\SODIUM PHOSPHATE, D
     Dosage: 30 GTT DROPS, QD, 30 DROPS/DAY
     Route: 064
     Dates: start: 20240628, end: 20250222
  45. CALCIUM PHOSPHATE, DIBASIC, ANHYDROUS\MAGNESIUM GLYCEROPHOSPHATE\PHOSP [Concomitant]
     Active Substance: CALCIUM PHOSPHATE, DIBASIC, ANHYDROUS\MAGNESIUM GLYCEROPHOSPHATE\PHOSPHORIC ACID\SODIUM PHOSPHATE, D
     Dosage: 30 GTT DROPS, QD, 30 DROPS/DAY
     Dates: start: 20240628, end: 20250222
  46. CALCIUM PHOSPHATE, DIBASIC, ANHYDROUS\MAGNESIUM GLYCEROPHOSPHATE\PHOSP [Concomitant]
     Active Substance: CALCIUM PHOSPHATE, DIBASIC, ANHYDROUS\MAGNESIUM GLYCEROPHOSPHATE\PHOSPHORIC ACID\SODIUM PHOSPHATE, D
     Dosage: 30 GTT DROPS, QD, 30 DROPS/DAY
     Dates: start: 20240628, end: 20250222
  47. CALCIUM PHOSPHATE, DIBASIC, ANHYDROUS\MAGNESIUM GLYCEROPHOSPHATE\PHOSP [Concomitant]
     Active Substance: CALCIUM PHOSPHATE, DIBASIC, ANHYDROUS\MAGNESIUM GLYCEROPHOSPHATE\PHOSPHORIC ACID\SODIUM PHOSPHATE, D
     Dosage: 30 GTT DROPS, QD, 30 DROPS/DAY
     Route: 064
     Dates: start: 20240628, end: 20250222
  48. CALCIUM PHOSPHATE, DIBASIC, ANHYDROUS\MAGNESIUM GLYCEROPHOSPHATE\PHOSP [Concomitant]
     Active Substance: CALCIUM PHOSPHATE, DIBASIC, ANHYDROUS\MAGNESIUM GLYCEROPHOSPHATE\PHOSPHORIC ACID\SODIUM PHOSPHATE, D
     Dosage: 30 GTT DROPS, QD, 30 DROPS/DAY
     Route: 064
     Dates: start: 20240628, end: 20250222

REACTIONS (6)
  - Pyelocaliectasis [Not Recovered/Not Resolved]
  - Neonatal hypoxia [Recovered/Resolved]
  - Hypertonia neonatal [Recovered/Resolved]
  - Scaphocephaly [Not Recovered/Not Resolved]
  - Tremor neonatal [Recovered/Resolved]
  - Foetal exposure during pregnancy [Recovered/Resolved]

NARRATIVE: CASE EVENT DATE: 20250222
